FAERS Safety Report 7771953-9 (Version None)
Quarter: 2011Q3

REPORT INFORMATION
  Report Type: 
  Country: None (occurrence: None)
  Receive Date: 20110922
  Receipt Date: 20100826
  Transmission Date: 20111222
  Serious: No
  Sender: FDA-Public Use
  Company Number: US-ASTRAZENECA-2007UW21508

PATIENT
  Age: 494 Month
  Sex: Female
  Weight: 79.4 kg

DRUGS (4)
  1. SEROQUEL [Suspect]
     Indication: DEPRESSION
     Route: 048
     Dates: start: 20030523, end: 20070701
  2. EFFEXOR [Concomitant]
     Route: 048
     Dates: start: 20000906
  3. SYNTHROID [Concomitant]
     Dosage: 0.05 - 88 MCG
     Route: 048
     Dates: start: 20000906
  4. SEROQUEL [Suspect]
     Route: 048
     Dates: start: 20031121

REACTIONS (6)
  - HYPERLIPIDAEMIA [None]
  - TYPE 2 DIABETES MELLITUS [None]
  - DIABETIC COMPLICATION [None]
  - DIABETES MELLITUS [None]
  - BLOOD TRIGLYCERIDES INCREASED [None]
  - BLOOD CHOLESTEROL INCREASED [None]
